FAERS Safety Report 12991234 (Version 1)
Quarter: 2016Q4

REPORT INFORMATION
  Report Type: Spontaneous
  Country: US (occurrence: US)
  Receive Date: 20161201
  Receipt Date: 20161201
  Transmission Date: 20170207
  Serious: No
  Sender: FDA-Public Use
  Company Number: None

PATIENT
  Age: 63 Year
  Sex: Female
  Weight: 70 kg

DRUGS (2)
  1. TECHNETIUM-99M SESTAMIBI [Suspect]
     Active Substance: TECHNETIUM TC-99M SESTAMIBI
     Indication: BONE SCAN
     Route: 040
     Dates: start: 20161128, end: 20161128
  2. TC 99 M-METHYLENE DIPHOSPHONATE [Suspect]
     Active Substance: TECHNETIUM TC-99M METHYLENE DIPHOSPHONATE

REACTIONS (1)
  - Product label issue [None]

NARRATIVE: CASE EVENT DATE: 20161128
